FAERS Safety Report 21735132 (Version 2)
Quarter: 2022Q4

REPORT INFORMATION
  Report Type: Report from Study
  Country: EG (occurrence: EG)
  Receive Date: 20221215
  Receipt Date: 20221216
  Transmission Date: 20230112
  Serious: Yes (Other)
  Sender: FDA-Public Use
  Company Number: EG-002147023-NVSC2022EG287191

PATIENT
  Age: 55 Year
  Sex: Male

DRUGS (9)
  1. COSENTYX [Suspect]
     Active Substance: SECUKINUMAB
     Indication: Psoriasis
     Dosage: 2 DOSAGE FORM, Q2W (2 PREFILLED PENS EVERY 15 DAYS FOR 1 MONTH AS A LOADING DOSE THEN 2 PREFILLED PE
     Route: 058
     Dates: start: 202208
  2. PANTOPRAZOLE SODIUM [Concomitant]
     Active Substance: PANTOPRAZOLE SODIUM
     Indication: Psoriasis
     Dosage: 2 DOSAGE FORM, QD (STARTED 4/5 MONTHS AGO)
     Route: 048
  3. CONTROLOC [Concomitant]
     Active Substance: PANTOPRAZOLE SODIUM
     Indication: Gastric ulcer
     Dosage: 1 DOSAGE FORM, QD (BEFORE BREAKFAST DAILY)
     Route: 065
     Dates: start: 202208
  4. FOLIC ACID [Concomitant]
     Active Substance: FOLIC ACID
     Indication: Product used for unknown indication
     Dosage: 1 DOSAGE FORM, QD (STARTED IN MAY OR JUN 2022) (MENTIONED THAT STOPPED FOR A MONTH DURING THIS PERIO
     Route: 065
     Dates: start: 2022
  5. ASPIRIN [Concomitant]
     Active Substance: ASPIRIN
     Indication: Cerebrovascular accident prophylaxis
     Dosage: 1 DOSAGE FORM, QD (AT NIGHT) (STARTED IN 2017/2018)
     Route: 065
  6. CHONDROITIN SULFATE (BOVINE)\DIMETHYL SULFONE\GLUCOSAMINE SULFATE [Concomitant]
     Active Substance: CHONDROITIN SULFATE (BOVINE)\DIMETHYL SULFONE\GLUCOSAMINE SULFATE
     Indication: Bone pain
     Dosage: UNK, PRN
     Route: 065
     Dates: start: 202208
  7. NASONEX [Concomitant]
     Active Substance: MOMETASONE FUROATE
     Indication: Dyspnoea
     Dosage: UNK, QD (SPRAYED ONCE IN MORNING)
     Route: 045
     Dates: start: 202210, end: 202211
  8. OMEGA [Concomitant]
     Indication: Vitamin supplementation
     Dosage: 2 DOSAGE FORM, QD
     Route: 065
     Dates: start: 202208, end: 202210
  9. CELEBORG [Concomitant]
     Indication: Immunisation
     Dosage: UNK UNK, PRN (STARTED IN APRIL OR MAY 2022, WHEN NEEDED)
     Route: 065
     Dates: start: 2022

REACTIONS (4)
  - Respiratory tract congestion [Recovered/Resolved]
  - Heart rate increased [Recovered/Resolved]
  - Dyspnoea exertional [Recovered/Resolved]
  - Off label use [Unknown]

NARRATIVE: CASE EVENT DATE: 20221118
